FAERS Safety Report 4802855-5 (Version None)
Quarter: 2005Q4

REPORT INFORMATION
  Report Type: 
  Country: None (occurrence: None)
  Receive Date: 20051013
  Receipt Date: 20050629
  Transmission Date: 20060501
  Serious: Yes (Other)
  Sender: FDA-Public Use
  Company Number: EM2005-0302

PATIENT
  Age: 36 Year
  Sex: Male
  Weight: 52 kg

DRUGS (7)
  1. MACROLIN; CHIRON CORPORATION (ALDESLEUKIN) INJECTION [Suspect]
     Indication: HIV INFECTION
     Dosage: SEE  IMAGE
     Dates: start: 20050110, end: 20050115
  2. MACROLIN; CHIRON CORPORATION (ALDESLEUKIN) INJECTION [Suspect]
     Indication: HIV INFECTION
     Dosage: SEE  IMAGE
     Dates: start: 20050201
  3. VIREAD [Concomitant]
  4. ZIAGEN [Concomitant]
  5. SUSTIVA [Concomitant]
  6. PLAVIX (CLOPDOGREL SULFATE) [Concomitant]
  7. BACTRIM [Concomitant]

REACTIONS (6)
  - ANGIONEUROTIC OEDEMA [None]
  - CD4 LYMPHOCYTES DECREASED [None]
  - FATIGUE [None]
  - LYMPHOCYTE COUNT DECREASED [None]
  - NASOPHARYNGITIS [None]
  - THYROXINE ABNORMAL [None]
